FAERS Safety Report 9447295 (Version 1)
Quarter: 2013Q3

REPORT INFORMATION
  Report Type: Spontaneous
  Country: US (occurrence: US)
  Receive Date: 20130808
  Receipt Date: 20130808
  Transmission Date: 20140515
  Serious: No
  Sender: FDA-Public Use
  Company Number: US-BIOGENIDEC-2013BI044845

PATIENT
  Age: 48 Year
  Sex: Female

DRUGS (2)
  1. AVONEX [Suspect]
     Indication: MULTIPLE SCLEROSIS
     Route: 030
     Dates: start: 2013
  2. AVONEX [Suspect]
     Indication: MULTIPLE SCLEROSIS
     Route: 030
     Dates: start: 20130327

REACTIONS (18)
  - Musculoskeletal disorder [Recovered/Resolved]
  - Inappropriate schedule of drug administration [Not Recovered/Not Resolved]
  - Fall [Recovered/Resolved]
  - Memory impairment [Unknown]
  - Hypoaesthesia [Recovered/Resolved]
  - Tachycardia [Unknown]
  - Fatigue [Recovered/Resolved]
  - Bone pain [Unknown]
  - Musculoskeletal chest pain [Unknown]
  - Dizziness [Recovered/Resolved]
  - Dyspnoea [Unknown]
  - Pyrexia [Recovered/Resolved]
  - Headache [Recovered/Resolved]
  - Chills [Recovered/Resolved]
  - Muscular weakness [Recovered/Resolved with Sequelae]
  - Alopecia [Not Recovered/Not Resolved]
  - Chest pain [Recovered/Resolved]
  - Drug ineffective [Unknown]
